FAERS Safety Report 24134176 (Version 2)
Quarter: 2024Q3

REPORT INFORMATION
  Report Type: Spontaneous
  Country: CA (occurrence: CA)
  Receive Date: 20240724
  Receipt Date: 20240916
  Transmission Date: 20241016
  Serious: Yes (Other)
  Sender: PFIZER
  Company Number: CA-PFIZER INC-202300269168

PATIENT
  Age: 55 Year
  Sex: Male

DRUGS (6)
  1. RUXIENCE [Suspect]
     Active Substance: RITUXIMAB-PVVR
     Indication: Granulomatosis with polyangiitis
     Dosage: 1 G, DAY 1 AND 15 (FIRST DOSE RECEIVED IN HOSPITAL)
     Route: 042
     Dates: start: 20230731, end: 20230815
  2. RUXIENCE [Suspect]
     Active Substance: RITUXIMAB-PVVR
     Dosage: 1 G, DAY 1 AND 15 (FIRST DOSE RECEIVED IN HOSPITAL)
     Route: 042
     Dates: start: 20230815
  3. RUXIENCE [Suspect]
     Active Substance: RITUXIMAB-PVVR
     Dosage: 500 MG X 1 DOSE
     Route: 042
     Dates: start: 20240220, end: 20240220
  4. ACETAMINOPHEN [Concomitant]
     Active Substance: ACETAMINOPHEN
     Indication: Premedication
     Dosage: UNK
     Dates: start: 20230815, end: 20230815
  5. DIPHENHYDRAMINE [Concomitant]
     Active Substance: DIPHENHYDRAMINE
     Indication: Premedication
     Dosage: UNK
     Dates: start: 20230815, end: 20230815
  6. METHYLPREDNISOLONE [Concomitant]
     Active Substance: METHYLPREDNISOLONE
     Indication: Premedication
     Dosage: UNK
     Dates: start: 20230815, end: 20230815

REACTIONS (7)
  - Fistula [Unknown]
  - Productive cough [Recovering/Resolving]
  - Respiratory tract congestion [Recovered/Resolved]
  - Sinus congestion [Recovering/Resolving]
  - Blood pressure increased [Recovering/Resolving]
  - Off label use [Unknown]
  - Incorrect product administration duration [Unknown]

NARRATIVE: CASE EVENT DATE: 20230101
